FAERS Safety Report 9356938 (Version 1)
Quarter: 2013Q2

REPORT INFORMATION
  Report Type: Spontaneous
  Country: IT (occurrence: IT)
  Receive Date: 20130620
  Receipt Date: 20130620
  Transmission Date: 20140414
  Serious: Yes (Hospitalization)
  Sender: FDA-Public Use
  Company Number: IT-ROCHE-1238143

PATIENT
  Age: 32 Year
  Sex: Female

DRUGS (4)
  1. TORADOL [Suspect]
     Indication: TOOTH EXTRACTION
     Dosage: 20 MG/ML
     Route: 048
     Dates: start: 20130406, end: 20130406
  2. AUGMENTIN [Suspect]
     Indication: TOOTH EXTRACTION
     Dosage: 875 MG/125 MG
     Route: 048
     Dates: start: 20130404, end: 20130407
  3. LANTUS SOLOSTAR [Concomitant]
  4. NOVORAPID [Concomitant]

REACTIONS (4)
  - Lip oedema [Unknown]
  - Oesophageal pain [Unknown]
  - Rash generalised [Unknown]
  - Pruritus generalised [Unknown]
